FAERS Safety Report 5243774-2 (Version None)
Quarter: 2007Q1

REPORT INFORMATION
  Report Type: 
  Country: None (occurrence: None)
  Receive Date: 20070209
  Receipt Date: 20070129
  Transmission Date: 20070707
  Serious: Yes (Hospitalization)
  Sender: FDA-Public Use
  Company Number: THYM-11228

PATIENT
  Age: 80 Year
  Sex: Male

DRUGS (6)
  1. THYMOGLOBULIN [Suspect]
     Indication: RENAL TRANSPLANT
     Dosage: 100 MG QD IV
     Route: 042
     Dates: start: 20070126, end: 20070127
  2. CELLCEPT [Concomitant]
  3. METHYLPREDNISOLONE 16MG TAB [Concomitant]
  4. PROGRAF [Concomitant]
  5. VALGANCICLOVIR HCL [Concomitant]
  6. ANCEF [Concomitant]

REACTIONS (5)
  - ATRIAL FIBRILLATION [None]
  - COMPLICATIONS OF TRANSPLANTED KIDNEY [None]
  - DIALYSIS [None]
  - PROCEDURAL HYPOTENSION [None]
  - RESPIRATORY ARREST [None]
